FAERS Safety Report 6877127-8 (Version None)
Quarter: 2010Q3

REPORT INFORMATION
  Report Type: 
  Country: None (occurrence: None)
  Receive Date: 20100727
  Receipt Date: 20100720
  Transmission Date: 20110219
  Serious: Yes (Life-Threatening)
  Sender: FDA-Public Use
  Company Number: US-ROCHE-713983

PATIENT
  Sex: Female
  Weight: 72.4 kg

DRUGS (10)
  1. TOCILIZUMAB [Suspect]
     Indication: RHEUMATOID ARTHRITIS
     Dosage: FORM: INFUSION, LAST DOSE PRIOR:17 JUNE 2010, PERMANENTLY DISCONTINUED, DOSE:0.4ML/KG,UNITS:28.96ML
     Route: 065
     Dates: start: 20060629, end: 20100624
  2. TOCILIZUMAB [Suspect]
     Dosage: THE PATIENT WAS PREVIOUSLY ENROLLED IN WA18062.
     Route: 065
  3. METHOTREXATE [Concomitant]
     Dates: start: 20090312, end: 20100624
  4. PREMARIN [Concomitant]
     Dates: start: 20071101, end: 20100624
  5. FOLIC ACID [Concomitant]
     Dates: start: 20030903
  6. AMBIEN [Concomitant]
     Dates: start: 20070601
  7. ADVIL LIQUI-GELS [Concomitant]
     Dates: start: 20030625
  8. IRON [Concomitant]
     Dates: start: 20090601
  9. CHLORTHALIDONE [Concomitant]
     Dates: start: 20100201
  10. K-DUR 20 [Concomitant]
     Dosage: D REPORTED AS 20 MCG
     Dates: start: 20100519

REACTIONS (2)
  - BREAST CANCER [None]
  - BREAST CANCER FEMALE [None]
